FAERS Safety Report 6635364-1 (Version None)
Quarter: 2010Q1

REPORT INFORMATION
  Report Type: 
  Country: None (occurrence: None)
  Receive Date: 20100312
  Receipt Date: 20100312
  Transmission Date: 20100710
  Serious: No
  Sender: FDA-Public Use
  Company Number: None

PATIENT
  Age: 58 Year
  Sex: Female
  Weight: 76 kg

DRUGS (1)
  1. ALENDRONATE SODIUM [Suspect]
     Indication: OSTEOPENIA
     Dosage: 70 MG WEEKLY PO
     Route: 048
     Dates: start: 20010101, end: 20080101

REACTIONS (2)
  - FEMUR FRACTURE [None]
  - STRESS FRACTURE [None]
